FAERS Safety Report 10060687 (Version 1)
Quarter: 2014Q2

REPORT INFORMATION
  Report Type: Spontaneous
  Country: US (occurrence: US)
  Receive Date: 20140404
  Receipt Date: 20140404
  Transmission Date: 20141212
  Serious: Yes (Other)
  Sender: FDA-Public Use
  Company Number: US-GE HEALTHCARE MEDICAL DIAGNOSTICS-OMPQ-PR-1403S-0346

PATIENT
  Age: 60 Year
  Sex: Male
  Weight: 72.64 kg

DRUGS (2)
  1. OMNIPAQUE [Suspect]
     Indication: PROSTATE CANCER
     Route: 042
     Dates: start: 20140321, end: 20140321
  2. OMNIPAQUE [Suspect]
     Indication: DIAGNOSTIC PROCEDURE

REACTIONS (4)
  - Aphasia [Unknown]
  - Anxiety [Unknown]
  - Confusional state [Unknown]
  - Dizziness [Unknown]
